FAERS Safety Report 6420196-X (Version None)
Quarter: 2009Q4

REPORT INFORMATION
  Report Type: 
  Country: None (occurrence: None)
  Receive Date: 20091029
  Receipt Date: 20091016
  Transmission Date: 20100525
  Serious: Yes (Hospitalization, Other)
  Sender: FDA-Public Use
  Company Number: PHHY2009JP38665

PATIENT
  Age: 75 Year
  Sex: Female

DRUGS (3)
  1. VOLTAREN [Suspect]
     Indication: PYREXIA
     Dosage: UNK
     Route: 048
  2. PREDNISOLONE [Concomitant]
     Indication: INTERSTITIAL LUNG DISEASE
     Dosage: 20 MG A DAY
     Route: 048
  3. LOXONIN [Concomitant]
     Indication: PYREXIA
     Dosage: UNK
     Route: 048

REACTIONS (7)
  - ABDOMINAL PAIN UPPER [None]
  - FALL [None]
  - FEMORAL NECK FRACTURE [None]
  - GASTRECTOMY [None]
  - GASTRIC ULCER PERFORATION [None]
  - HIP ARTHROPLASTY [None]
  - LAPAROTOMY [None]
